FAERS Safety Report 4270667-X (Version None)
Quarter: 2004Q1

REPORT INFORMATION
  Report Type: 
  Country: None (occurrence: None)
  Receive Date: 20040113
  Receipt Date: 20031231
  Transmission Date: 20041129
  Serious: Yes (Hospitalization)
  Sender: FDA-Public Use
  Company Number: A-US2003-03942

PATIENT
  Age: 23 Year
  Sex: Male
  Weight: 45.4 kg

DRUGS (11)
  1. TRACLEER [Suspect]
     Indication: PULMONARY HYPERTENSION
     Dosage: SEE IMAGE, ORAL
     Route: 048
     Dates: start: 20030131, end: 20030228
  2. TRACLEER [Suspect]
     Indication: PULMONARY HYPERTENSION
     Dosage: SEE IMAGE, ORAL
     Route: 048
     Dates: start: 20030301, end: 20031016
  3. COUMADIN [Concomitant]
  4. FLOLAN [Concomitant]
  5. ASPIRIN [Concomitant]
  6. PANTOPRAZOLE (PANTOPRAZOLE) [Concomitant]
  7. IMODIUM-A-D (LOPERAMIDE HYDROCHLORIDE) [Concomitant]
  8. LASIX [Concomitant]
  9. K-DUR 10 [Concomitant]
  10. PHENERGAN [Concomitant]
  11. TYLENOL [Concomitant]

REACTIONS (8)
  - ASCITES [None]
  - CYANOSIS [None]
  - DYSPNOEA [None]
  - FATIGUE [None]
  - HEADACHE [None]
  - HYPOXIA [None]
  - OEDEMA PERIPHERAL [None]
  - PERICARDIAL EFFUSION [None]
